FAERS Safety Report 6788449-3 (Version None)
Quarter: 2010Q2

REPORT INFORMATION
  Report Type: 
  Country: None (occurrence: None)
  Receive Date: 20100623
  Receipt Date: 20080304
  Transmission Date: 20101027
  Serious: No
  Sender: FDA-Public Use
  Company Number: US-PFIZER INC-2008022660

PATIENT
  Sex: Female
  Weight: 72.57 kg

DRUGS (3)
  1. ALDACTAZIDE [Suspect]
     Indication: FLUID RETENTION
     Dosage: 25/25 MG
  2. DRUG, UNSPECIFIED [Suspect]
     Indication: HYPOTHYROIDISM
  3. LASIX [Concomitant]

REACTIONS (2)
  - HYPERTHYROIDISM [None]
  - HYPOTHYROIDISM [None]
